FAERS Safety Report 19433194 (Version 1)
Quarter: 2021Q2

REPORT INFORMATION
  Report Type: Spontaneous
  Country: US (occurrence: US)
  Receive Date: 20210618
  Receipt Date: 20210618
  Transmission Date: 20210717
  Serious: No
  Sender: FDA-Public Use
  Company Number: US-BAUSCH-BL-2021-018273

PATIENT
  Age: 63 Year
  Sex: Male

DRUGS (4)
  1. JUBLIA [Suspect]
     Active Substance: EFINACONAZOLE
     Indication: FUNGAL INFECTION
     Dosage: DURATION: 4 TO 5 MONTHS
     Route: 061
  2. JUBLIA [Suspect]
     Active Substance: EFINACONAZOLE
     Dosage: USING FROM THE PAST 4 TO 5 MONTHS
     Route: 061
  3. ATORVASTATIN [Concomitant]
     Active Substance: ATORVASTATIN
     Indication: PRODUCT USED FOR UNKNOWN INDICATION
  4. LEVOTHYROXINE. [Concomitant]
     Active Substance: LEVOTHYROXINE
     Indication: PRODUCT USED FOR UNKNOWN INDICATION

REACTIONS (1)
  - Disease recurrence [Unknown]
